FAERS Safety Report 10891582 (Version 6)
Quarter: 2016Q4

REPORT INFORMATION
  Report Type: Report from Study
  Country: FR (occurrence: FR)
  Receive Date: 20150306
  Receipt Date: 20161114
  Transmission Date: 20170206
  Serious: Yes (Hospitalization, Other)
  Sender: FDA-Public Use
  Company Number: FR-ACTELION-A-CH2015-113857

PATIENT
  Age: 51 Year
  Sex: Female
  Weight: 66 kg

DRUGS (10)
  1. VALCHLOR [Suspect]
     Active Substance: MECHLORETHAMINE
     Indication: MYCOSIS FUNGOIDES
     Dosage: UNK
     Route: 061
     Dates: start: 20141218, end: 20150125
  2. XYZALL [Concomitant]
     Active Substance: LEVOCETIRIZINE DIHYDROCHLORIDE
     Dosage: UNK, OD
  3. DERMOVAL [Concomitant]
     Active Substance: CLOBETASOL
  4. TARGRETIN [Concomitant]
     Active Substance: BEXAROTENE
     Dosage: 75 MG, UNK
  5. DIPROSONE [Concomitant]
     Active Substance: BETAMETHASONE DIPROPIONATE
  6. LEVOTHYROX [Concomitant]
     Active Substance: LEVOTHYROXINE
     Dosage: 150 UNK, OD
  7. TARDYFERON [Concomitant]
     Active Substance: FERROUS SULFATE
     Dosage: UNK, BID
  8. FENOFIBRATE. [Concomitant]
     Active Substance: FENOFIBRATE
     Dosage: 160 MG, OD
  9. ROFERON-A [Concomitant]
     Active Substance: INTERFERON ALFA-2A
     Indication: MYCOSIS FUNGOIDES
     Dosage: 4.5 MU/ML, UNK
     Route: 058
     Dates: start: 2011
  10. BACTRIM [Concomitant]
     Active Substance: SULFAMETHOXAZOLE\TRIMETHOPRIM
     Dosage: UNK, OD

REACTIONS (6)
  - Burning sensation [Recovered/Resolved]
  - Papule [Unknown]
  - Telangiectasia [Recovered/Resolved]
  - Generalised erythema [Recovered/Resolved]
  - Dermatitis contact [Unknown]
  - Blister [Unknown]

NARRATIVE: CASE EVENT DATE: 201501
